FAERS Safety Report 20357942 (Version 2)
Quarter: 2022Q1

REPORT INFORMATION
  Report Type: Spontaneous
  Country: DK (occurrence: DK)
  Receive Date: 20220120
  Receipt Date: 20220203
  Transmission Date: 20220423
  Serious: Yes (Life-Threatening, Hospitalization, Other)
  Sender: FDA-Public Use
  Company Number: DK-TEVA-2022-DK-1999065

PATIENT
  Age: 21 Year
  Sex: Male

DRUGS (24)
  1. DIAZEPAM [Suspect]
     Active Substance: DIAZEPAM
     Indication: Delirium
     Route: 048
  2. DIAZEPAM [Suspect]
     Active Substance: DIAZEPAM
     Route: 042
  3. DIAZEPAM [Suspect]
     Active Substance: DIAZEPAM
     Route: 042
  4. DIAZEPAM [Suspect]
     Active Substance: DIAZEPAM
     Route: 042
  5. DIAZEPAM [Suspect]
     Active Substance: DIAZEPAM
     Dosage: DOSE INCREASED TO 60MG EVERY 5 HOURS
     Route: 042
  6. OLANZAPINE [Suspect]
     Active Substance: OLANZAPINE
     Indication: Delirium
     Dosage: 20 MILLIGRAM DAILY; VIA NASOGASTRIC TUBE
     Route: 065
  7. PREGABALIN [Suspect]
     Active Substance: PREGABALIN
     Indication: Delirium
     Dosage: 300 MILLIGRAM DAILY;
     Route: 050
  8. LORAZEPAM [Suspect]
     Active Substance: LORAZEPAM
     Indication: Delirium
     Dosage: RECEIVED LORAZEPAM 4MG TABLET TWICE
     Route: 065
  9. PROPOFOL [Suspect]
     Active Substance: PROPOFOL
     Indication: Sedation
     Route: 041
  10. PROPOFOL [Suspect]
     Active Substance: PROPOFOL
     Indication: Delirium
  11. SUFENTANIL [Suspect]
     Active Substance: SUFENTANIL
     Indication: Sedation
     Dosage: UP TO 100 MCG/HOUR.
     Route: 065
  12. SUFENTANIL [Suspect]
     Active Substance: SUFENTANIL
     Indication: Delirium
  13. CLONIDINE [Suspect]
     Active Substance: CLONIDINE
     Indication: Delirium
     Route: 050
  14. MIDAZOLAM [Suspect]
     Active Substance: MIDAZOLAM
     Indication: Delirium
     Route: 050
  15. METHADONE [Suspect]
     Active Substance: METHADONE HYDROCHLORIDE
     Indication: Sedation
     Dosage: 20 MILLIGRAM DAILY;
     Route: 050
  16. METHADONE [Suspect]
     Active Substance: METHADONE HYDROCHLORIDE
     Indication: Delirium
  17. HALOPERIDOL [Suspect]
     Active Substance: HALOPERIDOL
     Indication: Delirium
     Dosage: 30 MILLIGRAM DAILY;
     Route: 042
  18. HALOPERIDOL [Suspect]
     Active Substance: HALOPERIDOL
     Dosage: DOSE INCREASED TO 20MG EVERY 6 HOURS
     Route: 042
  19. HYDROXYZINE [Suspect]
     Active Substance: HYDROXYZINE HYDROCHLORIDE
     Indication: Delirium
     Dosage: INITIAL DOSE NOT STATED
     Route: 065
  20. HYDROXYZINE [Suspect]
     Active Substance: HYDROXYZINE HYDROCHLORIDE
     Dosage: 50 MILLIGRAM DAILY;
     Route: 065
  21. THIAMINE [Concomitant]
     Active Substance: THIAMINE
     Indication: Prophylaxis
     Route: 042
  22. VITAMIN B [Concomitant]
     Active Substance: VITAMIN B
     Indication: Prophylaxis
     Route: 065
  23. PIPERACILLIN SODIUM\TAZOBACTAM SODIUM [Concomitant]
     Active Substance: PIPERACILLIN SODIUM\TAZOBACTAM SODIUM
     Indication: Evidence based treatment
     Route: 065
  24. FLUMAZENIL [Concomitant]
     Active Substance: FLUMAZENIL
     Indication: Product used for unknown indication
     Route: 065

REACTIONS (1)
  - Drug ineffective [Unknown]
